FAERS Safety Report 5179269-4 (Version None)
Quarter: 2006Q4

REPORT INFORMATION
  Report Type: 
  Country: None (occurrence: None)
  Receive Date: 20061219
  Receipt Date: 20061213
  Transmission Date: 20070319
  Serious: Yes (Other)
  Sender: FDA-Public Use
  Company Number: US-JNJFOC-20061203507

PATIENT
  Sex: Female
  Weight: 86.18 kg

DRUGS (5)
  1. TYLENOL (CAPLET) [Suspect]
  2. TYLENOL (CAPLET) [Suspect]
     Indication: PAIN
  3. ACIPHEX [Concomitant]
     Indication: GASTRIC DISORDER
  4. BETA BLOCKER [Concomitant]
     Indication: CARDIAC DISORDER
  5. LASIX [Concomitant]
     Indication: CARDIAC DISORDER

REACTIONS (3)
  - DYSPNOEA [None]
  - REACTION TO DRUG EXCIPIENTS [None]
  - URTICARIA [None]
